APPROVED DRUG PRODUCT: PENTIDS '400'
Active Ingredient: PENICILLIN G POTASSIUM
Strength: 400,000 UNITS/5ML
Dosage Form/Route: FOR SOLUTION;ORAL
Application: A062149 | Product #002
Applicant: APOTHECON SUB BRISTOL MYERS SQUIBB CO
Approved: Approved Prior to Jan 1, 1982 | RLD: No | RS: No | Type: DISCN